FAERS Safety Report 6052084-5 (Version None)
Quarter: 2009Q1

REPORT INFORMATION
  Report Type: 
  Country: None (occurrence: None)
  Receive Date: 20090126
  Receipt Date: 20090120
  Transmission Date: 20090719
  Serious: No
  Sender: FDA-Public Use
  Company Number: US-B.I. PHARMACEUTICALS,INC./RIDGEFIELD-2008-BP-14162BP

PATIENT
  Sex: Male

DRUGS (3)
  1. RANITIDINE [Suspect]
     Indication: NAUSEA
     Dosage: 150MG
     Route: 048
     Dates: start: 20080901, end: 20090120
  2. RANITIDINE [Suspect]
     Dosage: 75MG
     Route: 048
     Dates: start: 20090115, end: 20090120
  3. LEVOXYL [Concomitant]
     Indication: THYROID DISORDER
     Dosage: 20MG
     Route: 048
     Dates: start: 20071201

REACTIONS (4)
  - DYSPEPSIA [None]
  - OESOPHAGEAL PAIN [None]
  - PRURITUS [None]
  - RASH [None]
